FAERS Safety Report 7305930-9 (Version None)
Quarter: 2011Q1

REPORT INFORMATION
  Report Type: 
  Country: None (occurrence: None)
  Receive Date: 20110210
  Receipt Date: 20110131
  Transmission Date: 20110831
  Serious: Yes (Disabling)
  Sender: FDA-Public Use
  Company Number: KV201100022

PATIENT
  Age: 54 Year
  Sex: Male

DRUGS (2)
  1. PREDNISOLONE [Suspect]
     Indication: BACK PAIN
     Dosage: 125 MG, SINGLE, EPIDURAL
     Route: 008
  2. PREDNISOLONE [Suspect]
     Indication: SCIATICA
     Dosage: 125 MG, SINGLE, EPIDURAL
     Route: 008

REACTIONS (6)
  - INFUSION RELATED REACTION [None]
  - FEELING HOT [None]
  - PARALYSIS FLACCID [None]
  - URINARY TRACT DISORDER [None]
  - FLUSHING [None]
  - ISCHAEMIA [None]
